FAERS Safety Report 8535054-4 (Version None)
Quarter: 2012Q3

REPORT INFORMATION
  Report Type: 
  Country: None (occurrence: None)
  Receive Date: 20120724
  Receipt Date: 20120720
  Transmission Date: 20120928
  Serious: Yes (Other)
  Sender: FDA-Public Use
  Company Number: NL-PFIZER INC-2012176910

PATIENT
  Sex: Female

DRUGS (3)
  1. OMEPRAZOLE [Concomitant]
  2. LAMOTRIGINE [Concomitant]
     Indication: EPILEPSY
  3. CELEBREX [Suspect]
     Dosage: 100 MG, UNK

REACTIONS (1)
  - EPILEPSY [None]
